FAERS Safety Report 7269685-9 (Version None)
Quarter: 2011Q1

REPORT INFORMATION
  Report Type: 
  Country: None (occurrence: None)
  Receive Date: 20110124
  Receipt Date: 20100413
  Transmission Date: 20110831
  Serious: No
  Sender: FDA-Public Use
  Company Number: 2010-000385

PATIENT
  Age: 47 Year
  Sex: Male
  Weight: 90.7194 kg

DRUGS (2)
  1. ZICAM COLD REMEDY PLUS LIQUI-LOZ [Suspect]
     Dosage: 4 DOSES, 4 DOSES
     Dates: start: 20100412, end: 20100413
  2. ZICAM INTENSE SINUS RELIEF [Suspect]
     Dosage: 1X ON 4/12, 1X ON 4/13
     Dates: start: 20100412, end: 20100413

REACTIONS (1)
  - AGEUSIA [None]
